FAERS Safety Report 25664412 (Version 1)
Quarter: 2025Q3

REPORT INFORMATION
  Report Type: Spontaneous
  Country: US (occurrence: None)
  Receive Date: 20250808
  Receipt Date: 20250808
  Transmission Date: 20251020
  Serious: Yes (Other)
  Sender: FDA-CTU
  Company Number: None

PATIENT
  Age: 41 Year
  Sex: Female
  Weight: 51.75 kg

DRUGS (1)
  1. RITUXAN [Suspect]
     Active Substance: RITUXIMAB
     Indication: Myasthenia gravis
     Route: 042
     Dates: start: 20250805, end: 20250805

REACTIONS (5)
  - Infusion related reaction [None]
  - Throat irritation [None]
  - Eye pruritus [None]
  - Ear pruritus [None]
  - Chest discomfort [None]

NARRATIVE: CASE EVENT DATE: 20250805
